FAERS Safety Report 7049726-4 (Version None)
Quarter: 2010Q4

REPORT INFORMATION
  Report Type: 
  Country: None (occurrence: None)
  Receive Date: 20101018
  Receipt Date: 20101008
  Transmission Date: 20110411
  Serious: Yes (Hospitalization, Congenital Anomaly)
  Sender: FDA-Public Use
  Company Number: A0887128A

PATIENT
  Sex: Male
  Weight: 3.3 kg

DRUGS (2)
  1. PAXIL [Suspect]
     Indication: ANXIETY
  2. XANAX [Concomitant]
     Route: 049

REACTIONS (6)
  - CARDIAC FAILURE CONGESTIVE [None]
  - CONGENITAL ANOMALY [None]
  - CONGESTIVE CARDIOMYOPATHY [None]
  - DRUG EXPOSURE DURING PREGNANCY [None]
  - HEART TRANSPLANT [None]
  - VIRAL MYOCARDITIS [None]
